FAERS Safety Report 4763941-1 (Version None)
Quarter: 2005Q3

REPORT INFORMATION
  Report Type: 
  Country: None (occurrence: None)
  Receive Date: 20050906
  Receipt Date: 20050824
  Transmission Date: 20060218
  Serious: Yes (Other)
  Sender: FDA-Public Use
  Company Number: EM2005-0424

PATIENT
  Sex: 0

DRUGS (2)
  1. PROLEUKIN [Suspect]
     Indication: RENAL CELL CARCINOMA STAGE UNSPECIFIED
     Dosage: 5 MIU/M2, Q8H, SUBCUTAN.
     Route: 058
  2. PEGYLATED INTERFERON () [Suspect]
     Indication: RENAL CELL CARCINOMA STAGE UNSPECIFIED
     Dosage: 3 UG/KG/, QW,

REACTIONS (1)
  - HYPERKALAEMIA [None]
